FAERS Safety Report 4441379-4 (Version None)
Quarter: 2004Q3

REPORT INFORMATION
  Report Type: 
  Country: None (occurrence: None)
  Receive Date: 20040728
  Receipt Date: 20040507
  Transmission Date: 20050211
  Serious: No
  Sender: FDA-Public Use
  Company Number: USA040566977

PATIENT
  Age: 12 Year
  Sex: Male

DRUGS (3)
  1. STRATTERA [Suspect]
     Indication: ATTENTION DEFICIT/HYPERACTIVITY DISORDER
     Dosage: 40 MG DAY
     Dates: start: 20040219, end: 20040416
  2. GEODON [Concomitant]
  3. ZOLOFT [Concomitant]

REACTIONS (3)
  - DISORIENTATION [None]
  - HYPERSENSITIVITY [None]
  - VOMITING [None]
